FAERS Safety Report 5710322-X (Version None)
Quarter: 2008Q2

REPORT INFORMATION
  Report Type: 
  Country: None (occurrence: None)
  Receive Date: 20080418
  Receipt Date: 20080407
  Transmission Date: 20081010
  Serious: Yes (Other)
  Sender: FDA-Public Use
  Company Number: US-PFIZER INC-2008031264

PATIENT
  Sex: Male

DRUGS (8)
  1. SPIRONOLACTONE [Suspect]
     Indication: PULMONARY OEDEMA
  2. FUROSEMIDE [Concomitant]
  3. ANTIBIOTICS [Concomitant]
  4. POTASSIUM CHLORIDE [Concomitant]
  5. ALBUTEROL [Concomitant]
  6. IPRATROPIUM BROMIDE [Concomitant]
  7. ENULOSE [Concomitant]
  8. ROBINUL [Concomitant]

REACTIONS (1)
  - ACCIDENTAL OVERDOSE [None]
